FAERS Safety Report 12610470 (Version 1)
Quarter: 2016Q3

REPORT INFORMATION
  Report Type: Spontaneous
  Country: BR (occurrence: BR)
  Receive Date: 20160801
  Receipt Date: 20160801
  Transmission Date: 20161109
  Serious: Yes (Death, Hospitalization, Other)
  Sender: FDA-Public Use
  Company Number: BR-PFIZER INC-2016362645

PATIENT
  Age: 79 Year
  Sex: Male

DRUGS (3)
  1. FRONTAL [Suspect]
     Active Substance: ALPRAZOLAM
     Indication: INSOMNIA
     Dosage: UNK, 1X/DAY AT NIGHT
     Route: 048
     Dates: end: 20160426
  2. XTANDI [Concomitant]
     Active Substance: ENZALUTAMIDE
     Indication: PROSTATIC DISORDER
     Dosage: 4 DAILY
     Dates: end: 20160426
  3. ZYTIGA [Concomitant]
     Active Substance: ABIRATERONE ACETATE
     Indication: BONE DISORDER
     Dosage: UNK, 4X/DAY
     Dates: start: 2011, end: 20160426

REACTIONS (3)
  - Multiple organ dysfunction syndrome [Fatal]
  - Prostate cancer [Fatal]
  - Metastasis [Fatal]
